FAERS Safety Report 17856163 (Version 3)
Quarter: 2021Q2

REPORT INFORMATION
  Report Type: Other
  Country: GB (occurrence: GB)
  Receive Date: 20200603
  Receipt Date: 20210512
  Transmission Date: 20210717
  Serious: Yes (Death, Other)
  Sender: FDA-Public Use
  Company Number: GB-ASPEN-GLO2020GB005416

PATIENT

DRUGS (18)
  1. DEXAMETHASONE. [Suspect]
     Active Substance: DEXAMETHASONE
     Indication: IMMUNE EFFECTOR CELL-ASSOCIATED NEUROTOXICITY SYNDROME
     Dosage: UNK
     Route: 065
     Dates: start: 20200121
  2. SYLVANT [Suspect]
     Active Substance: SILTUXIMAB
     Dosage: 100 MG (LYOPHILIZED POWDER)
     Route: 042
     Dates: start: 20200210
  3. ACICLOVIR [Concomitant]
     Active Substance: ACYCLOVIR
     Indication: LYMPHOCYTE ADOPTIVE THERAPY
     Dosage: UNK
     Route: 065
     Dates: start: 20200103
  4. FLUCONAZOLE. [Concomitant]
     Active Substance: FLUCONAZOLE
     Indication: LYMPHOCYTE ADOPTIVE THERAPY
     Dosage: UNK
     Route: 065
     Dates: start: 20200106
  5. TOCILIZUMAB. [Suspect]
     Active Substance: TOCILIZUMAB
     Indication: CYTOKINE RELEASE SYNDROME
  6. ZARZIO [Concomitant]
     Active Substance: FILGRASTIM
     Indication: LYMPHOCYTE ADOPTIVE THERAPY
     Dosage: UNK
     Route: 065
     Dates: start: 20200130
  7. CIPROFLOXACIN. [Concomitant]
     Active Substance: CIPROFLOXACIN
     Indication: LYMPHOCYTE ADOPTIVE THERAPY
     Dosage: UNK
     Route: 065
     Dates: start: 20200103
  8. PREDNISOLONE. [Concomitant]
     Active Substance: PREDNISOLONE
     Dosage: 100 MG
     Route: 065
  9. LEVETIRACETAM. [Concomitant]
     Active Substance: LEVETIRACETAM
     Indication: LYMPHOCYTE ADOPTIVE THERAPY
     Dosage: UNK
     Route: 065
     Dates: start: 20200108
  10. ANAKINRA [Suspect]
     Active Substance: ANAKINRA
     Indication: IMMUNE EFFECTOR CELL-ASSOCIATED NEUROTOXICITY SYNDROME
     Dosage: UNK
     Route: 065
     Dates: start: 20200124
  11. TOCILIZUMAB. [Suspect]
     Active Substance: TOCILIZUMAB
     Indication: IMMUNE EFFECTOR CELL-ASSOCIATED NEUROTOXICITY SYNDROME
     Dosage: 4 TIMES
     Route: 065
     Dates: start: 20200113, end: 20200120
  12. ONDANSETRON [Concomitant]
     Active Substance: ONDANSETRON
     Indication: LYMPHOCYTE ADOPTIVE THERAPY
     Dosage: UNK
     Route: 065
     Dates: start: 20200103
  13. METOCLOPRAMIDE. [Concomitant]
     Active Substance: METOCLOPRAMIDE
     Indication: LYMPHOCYTE ADOPTIVE THERAPY
     Dosage: UNK
     Route: 065
     Dates: start: 20200103
  14. PREDNISOLONE. [Concomitant]
     Active Substance: PREDNISOLONE
     Indication: MYASTHENIC SYNDROME
     Dosage: UNK
     Route: 065
  15. SYLVANT [Suspect]
     Active Substance: SILTUXIMAB
     Indication: CYTOKINE RELEASE SYNDROME
     Dosage: (LYOPHILIZED POWDER)
     Route: 042
     Dates: start: 20191230
  16. AZATHIOPRINE. [Concomitant]
     Active Substance: AZATHIOPRINE
     Indication: MYASTHENIC SYNDROME
     Route: 065
  17. PREDNISOLONE. [Concomitant]
     Active Substance: PREDNISOLONE
     Dosage: UNK
  18. METHYLPREDNISOLONE. [Suspect]
     Active Substance: METHYLPREDNISOLONE
     Indication: IMMUNE EFFECTOR CELL-ASSOCIATED NEUROTOXICITY SYNDROME
     Route: 065

REACTIONS (6)
  - Toxicity to various agents [Fatal]
  - Disease progression [Fatal]
  - Immune effector cell-associated neurotoxicity syndrome [Unknown]
  - Cytokine release syndrome [Unknown]
  - Product use in unapproved indication [Unknown]
  - Off label use [Unknown]

NARRATIVE: CASE EVENT DATE: 202003
